FAERS Safety Report 14067799 (Version 2)
Quarter: 2018Q1

REPORT INFORMATION
  Report Type: Spontaneous
  Country: CA (occurrence: CA)
  Receive Date: 20171009
  Receipt Date: 20180117
  Transmission Date: 20180508
  Serious: Yes (Other)
  Sender: FDA-Public Use
  Company Number: CA-BIOGEN-2017BI00468445

PATIENT

DRUGS (1)
  1. TYSABRI [Suspect]
     Active Substance: NATALIZUMAB
     Indication: PATERNAL EXPOSURE TIMING UNSPECIFIED
     Dosage: INFUSED OVER ONE HOUR
     Route: 064
     Dates: start: 20150827

REACTIONS (2)
  - Exposure via father [Recovered/Resolved]
  - Trisomy 21 [Not Recovered/Not Resolved]
